FAERS Safety Report 8737365 (Version 3)
Quarter: 2013Q3

REPORT INFORMATION
  Report Type: Report from Study
  Country: JP (occurrence: JP)
  Receive Date: 20120822
  Receipt Date: 20130912
  Transmission Date: 20140515
  Serious: Yes (Hospitalization, Other)
  Sender: FDA-Public Use
  Company Number: JP-VERTEX PHARMACEUTICAL INC.-2012-019674

PATIENT
  Age: 62 Year
  Sex: Female

DRUGS (13)
  1. VX-950 (TELAPREVIR) [Suspect]
     Indication: HEPATITIS C
     Dosage: 2500 MG, QD
     Route: 048
     Dates: start: 20120502, end: 20120702
  2. VX-950 (TELAPREVIR) [Suspect]
     Dosage: 1500 MG, QD
     Route: 048
     Dates: start: 20120703, end: 20120724
  3. RIBAVIRIN [Suspect]
     Indication: HEPATITIS C
     Dosage: 400 MG, QD
     Route: 048
     Dates: start: 20120502, end: 20120619
  4. RIBAVIRIN [Suspect]
     Dosage: 200 MG, QD
     Route: 048
     Dates: start: 20120620, end: 20120723
  5. RIBAVIRIN [Suspect]
     Dosage: 400 MG, QD
     Route: 048
     Dates: start: 20120724, end: 20120806
  6. RIBAVIRIN [Suspect]
     Dosage: 200 MG, QD
     Route: 048
     Dates: start: 20120807, end: 20120917
  7. RIBAVIRIN [Suspect]
     Dosage: 400 MG, QD
     Route: 048
     Dates: start: 20120918, end: 20121016
  8. PEGINTERFERON ALFA-2B [Suspect]
     Indication: HEPATITIS C
     Dosage: 1.5 ?G/KG, QW
     Route: 058
     Dates: start: 20120502, end: 20121009
  9. ACTOS [Concomitant]
     Dosage: 30 MG, QD
     Route: 048
  10. VOGLIBOSE [Concomitant]
     Dosage: 0.6 MG, QD
     Route: 048
  11. NORVASC [Concomitant]
     Dosage: 5 MG, QD
     Route: 048
  12. FERROMIA [Concomitant]
     Dosage: 100 MG, QD
     Route: 048
  13. GASPORT [Concomitant]
     Dosage: 10 MG, QD
     Route: 048

REACTIONS (4)
  - Malaise [Not Recovered/Not Resolved]
  - Anaemia [Not Recovered/Not Resolved]
  - Vomiting [Recovered/Resolved]
  - Nausea [Recovered/Resolved]
